FAERS Safety Report 5092202-9 (Version None)
Quarter: 2006Q3

REPORT INFORMATION
  Report Type: 
  Country: None (occurrence: None)
  Receive Date: 20060828
  Receipt Date: 20060828
  Transmission Date: 20061208
  Serious: Yes (Hospitalization)
  Sender: FDA-Public Use
  Company Number: None

PATIENT
  Age: 48 Year
  Sex: Male
  Weight: 45.3597 kg

DRUGS (25)
  1. DOCETAXEL 25 MG / M2 [Suspect]
     Indication: NEOPLASM MALIGNANT
     Dosage: 38 MG DAY 1 Q 21 DAYS IV DRIP
     Route: 041
     Dates: start: 20060807, end: 20060807
  2. FLUOROURACIL [Suspect]
     Indication: NEOPLASM MALIGNANT
     Dosage: 918 MG DAYS 1-5 Q 21 DAYS IV DRIP
     Route: 041
     Dates: start: 20060807, end: 20060807
  3. ASPIRIN [Concomitant]
  4. PREVACID [Concomitant]
  5. LACRI-LUBE [Concomitant]
  6. ATIVAN [Concomitant]
  7. DURAGESIC-100 [Concomitant]
  8. ANTIVERT [Concomitant]
  9. MAGNESIUM OXIDE [Concomitant]
  10. ZOLOFT [Concomitant]
  11. MAALIDOBAN SOLUTION [Concomitant]
  12. COMPAZINE [Concomitant]
  13. ZOFRAN [Concomitant]
  14. DIFLUCAN [Concomitant]
  15. XYLOCAINE [Concomitant]
  16. VISCUS [Concomitant]
  17. VITAMIN E OIL [Concomitant]
  18. AQUAPHOR CREAM [Concomitant]
  19. XENODERM [Concomitant]
  20. WELLBUTRIN SR [Concomitant]
  21. COLACE [Concomitant]
  22. SENOKOT [Concomitant]
  23. NEUPROGEN [Concomitant]
  24. ARANESP [Concomitant]
  25. AQUACEL AG [Concomitant]

REACTIONS (4)
  - AGITATION [None]
  - CONFUSIONAL STATE [None]
  - DELIRIUM TREMENS [None]
  - HALLUCINATION [None]
